FAERS Safety Report 15790923 (Version 2)
Quarter: 2020Q3

REPORT INFORMATION
  Report Type: Spontaneous
  Country: ES (occurrence: ES)
  Receive Date: 20190104
  Receipt Date: 20200720
  Transmission Date: 20201102
  Serious: Yes (Life-Threatening)
  Sender: FDA-Public Use
  Company Number: ES-EISAI MEDICAL RESEARCH-EC-2019-050115

PATIENT
  Age: 65 Year
  Sex: Female
  Weight: 58 kg

DRUGS (7)
  1. SITAGLIPTIN [Concomitant]
     Active Substance: SITAGLIPTIN
     Indication: PRODUCT USED FOR UNKNOWN INDICATION
     Dosage: DOSE AND FREQUENCY NOT PROVIDED
  2. LENVATINIB [Suspect]
     Active Substance: LENVATINIB
     Indication: THYROID CANCER
     Route: 048
     Dates: start: 20180606, end: 20181211
  3. RIVAROXABAN [Concomitant]
     Active Substance: RIVAROXABAN
     Indication: PRODUCT USED FOR UNKNOWN INDICATION
     Dosage: DOSE AND FREQUENCY NOT PROVIDED
  4. FENTANYL. [Concomitant]
     Active Substance: FENTANYL
     Indication: PRODUCT USED FOR UNKNOWN INDICATION
     Dosage: FREQUENCY NOT PROVIDED
     Route: 062
  5. LEVOTHYROXINE SODIUM. [Concomitant]
     Active Substance: LEVOTHYROXINE SODIUM
     Indication: PRODUCT USED FOR UNKNOWN INDICATION
  6. METFORMIN [Concomitant]
     Active Substance: METFORMIN HYDROCHLORIDE
     Indication: PRODUCT USED FOR UNKNOWN INDICATION
     Dosage: DOSE AND FREQUENCY NOT PROVIDED
  7. ZOLEDRONIC [Concomitant]
     Active Substance: ZOLEDRONIC ACID
     Indication: PRODUCT USED FOR UNKNOWN INDICATION
     Dosage: DOSE AND FREQUENCY NOT PROVIDED

REACTIONS (1)
  - Acute coronary syndrome [Recovered/Resolved]

NARRATIVE: CASE EVENT DATE: 20181213
